FAERS Safety Report 14016811 (Version 3)
Quarter: 2017Q4

REPORT INFORMATION
  Report Type: Report from Study
  Country: JP (occurrence: JP)
  Receive Date: 20170927
  Receipt Date: 20171120
  Transmission Date: 20180321
  Serious: Yes (Death, Hospitalization)
  Sender: FDA-Public Use
  Company Number: JP-JNJFOC-20170800609

PATIENT
  Age: 76 Year
  Sex: Male
  Weight: 37 kg

DRUGS (48)
  1. REMICADE [Suspect]
     Active Substance: INFLIXIMAB
     Indication: BEHCET^S SYNDROME
     Route: 042
     Dates: start: 20170131
  2. HUMIRA [Suspect]
     Active Substance: ADALIMUMAB
     Indication: BEHCET^S SYNDROME
     Route: 065
     Dates: start: 201605
  3. TRAMAL [Suspect]
     Active Substance: TRAMADOL
     Indication: BEHCET^S SYNDROME
     Route: 030
     Dates: start: 20170110, end: 20170116
  4. SOLU-MEDROL [Suspect]
     Active Substance: METHYLPREDNISOLONE SODIUM SUCCINATE
     Indication: BEHCET^S SYNDROME
     Route: 042
     Dates: start: 20170111, end: 20170113
  5. HEPARIN [Concomitant]
     Active Substance: HEPARIN SODIUM
     Indication: BEHCET^S SYNDROME
     Route: 042
     Dates: start: 20170327, end: 20170328
  6. COLCHICINE. [Concomitant]
     Active Substance: COLCHICINE
     Indication: BEHCET^S SYNDROME
     Dosage: BEFORE ADMINISTRATION OF REC
     Route: 048
     Dates: start: 20170516
  7. LANSOPRAZOLE. [Concomitant]
     Active Substance: LANSOPRAZOLE
     Indication: PROPHYLAXIS
     Dosage: BEFORE ADMINISTRATION OF REC
     Route: 048
     Dates: start: 20170117
  8. HUMIRA [Suspect]
     Active Substance: ADALIMUMAB
     Indication: BEHCET^S SYNDROME
     Route: 065
     Dates: start: 20170517
  9. SAMTIREL [Concomitant]
     Active Substance: ATOVAQUONE
     Indication: PROPHYLAXIS
     Route: 048
     Dates: start: 20170308, end: 20170310
  10. ELIQUIS [Concomitant]
     Active Substance: APIXABAN
     Indication: BEHCET^S SYNDROME
     Route: 048
     Dates: start: 20170428, end: 20170516
  11. DOMPERIDONE [Concomitant]
     Active Substance: DOMPERIDONE
     Indication: PROPHYLAXIS
     Route: 048
     Dates: start: 20170504, end: 20170510
  12. PROGRAF [Concomitant]
     Active Substance: TACROLIMUS\TACROLIMUS ANHYDROUS
     Indication: BEHCET^S SYNDROME
     Route: 048
     Dates: start: 20170522, end: 20170531
  13. PENTASA [Concomitant]
     Active Substance: MESALAMINE
     Indication: BEHCET^S SYNDROME
     Dosage: BEFORE ADMINISTRATION OF REC
     Route: 048
     Dates: start: 20170117
  14. REMICADE [Suspect]
     Active Substance: INFLIXIMAB
     Indication: BEHCET^S SYNDROME
     Route: 042
     Dates: start: 20170117
  15. PIPERACILLIN AND TAZOBACTAM [Concomitant]
     Active Substance: PIPERACILLIN SODIUM\TAZOBACTAM SODIUM
     Indication: PROPHYLAXIS
     Route: 042
     Dates: start: 20170316, end: 20170321
  16. CYMBALTA [Concomitant]
     Active Substance: DULOXETINE HYDROCHLORIDE
     Indication: BEHCET^S SYNDROME
     Route: 048
     Dates: start: 20170504, end: 20170525
  17. PENTASA [Concomitant]
     Active Substance: MESALAMINE
     Indication: BEHCET^S SYNDROME
     Route: 048
     Dates: start: 20170307, end: 20170316
  18. REBAMIPIDE [Concomitant]
     Active Substance: REBAMIPIDE
     Indication: PROPHYLAXIS
     Dosage: BEFORE ADMINISTRATION OF REC
     Route: 048
     Dates: start: 20170117
  19. RECOMODULIN [Concomitant]
     Active Substance: THROMBOMODULIN ALFA
     Indication: BEHCET^S SYNDROME
     Route: 042
     Dates: start: 20170530, end: 20170603
  20. BREDININ [Suspect]
     Active Substance: MIZORIBINE
     Indication: BEHCET^S SYNDROME
     Route: 048
     Dates: start: 20170503, end: 20170517
  21. PREDONINE [Suspect]
     Active Substance: PREDNISOLONE
     Indication: BEHCET^S SYNDROME
     Route: 048
     Dates: start: 20170309, end: 20170603
  22. MOSAPRIDE CITRATE [Concomitant]
     Active Substance: MOSAPRIDE CITRATE
     Indication: PROPHYLAXIS
     Route: 048
     Dates: start: 20170104, end: 20170110
  23. TAKEPRON [Concomitant]
     Active Substance: LANSOPRAZOLE
     Indication: PROPHYLAXIS
     Route: 042
     Dates: start: 20170517, end: 20170523
  24. PREDONINE [Suspect]
     Active Substance: PREDNISOLONE
     Indication: BEHCET^S SYNDROME
     Route: 042
     Dates: start: 20170224, end: 20170227
  25. PREDONINE [Suspect]
     Active Substance: PREDNISOLONE
     Indication: BEHCET^S SYNDROME
     Dosage: BEFORE ADMINISTRATION OF REC
     Route: 048
     Dates: start: 20170111, end: 2017
  26. FAMOTIDINE. [Concomitant]
     Active Substance: FAMOTIDINE
     Indication: PROPHYLAXIS
     Route: 042
     Dates: start: 20170317, end: 20170324
  27. HEPARIN [Concomitant]
     Active Substance: HEPARIN SODIUM
     Indication: BEHCET^S SYNDROME
     Route: 042
     Dates: start: 20170329, end: 20170402
  28. PROGRAF [Concomitant]
     Active Substance: TACROLIMUS\TACROLIMUS ANHYDROUS
     Indication: BEHCET^S SYNDROME
     Route: 048
     Dates: start: 20170517, end: 20170522
  29. LYRICA [Concomitant]
     Active Substance: PREGABALIN
     Indication: BEHCET^S SYNDROME
     Route: 048
     Dates: start: 20170524, end: 20170601
  30. TOCOPHEROL [Concomitant]
     Active Substance: TOCOPHEROL
     Dosage: BEFORE ADMINISTRATION OF REC
     Route: 048
     Dates: start: 20161227
  31. CIMZIA [Suspect]
     Active Substance: CERTOLIZUMAB PEGOL
     Indication: BEHCET^S SYNDROME
     Route: 065
     Dates: start: 20170522
  32. CELESTANA [Suspect]
     Active Substance: BETAMETHASONE\DEXCHLORPHENIRAMINE MALEATE
     Indication: BEHCET^S SYNDROME
     Route: 065
     Dates: start: 20170522, end: 20170603
  33. PREDONINE [Suspect]
     Active Substance: PREDNISOLONE
     Indication: BEHCET^S SYNDROME
     Route: 048
     Dates: start: 20170228, end: 20170308
  34. CEFMETAZOLE SODIUM [Concomitant]
     Active Substance: CEFMETAZOLE SODIUM
     Indication: BEHCET^S SYNDROME
     Route: 042
     Dates: start: 20170110, end: 20170116
  35. ACELIO [Concomitant]
     Active Substance: ACETAMINOPHEN
     Indication: BEHCET^S SYNDROME
     Route: 042
     Dates: start: 20170124
  36. LANSOPRAZOLE. [Concomitant]
     Active Substance: LANSOPRAZOLE
     Indication: PROPHYLAXIS
     Route: 048
     Dates: start: 20170228, end: 20170316
  37. LANSOPRAZOLE. [Concomitant]
     Active Substance: LANSOPRAZOLE
     Indication: PROPHYLAXIS
     Route: 048
     Dates: start: 20170504, end: 20170517
  38. POLAPREZINC [Concomitant]
     Active Substance: POLAPREZINC
     Indication: PROPHYLAXIS
     Dosage: BEFORE ADMINISTRATION OF REC
     Route: 048
     Dates: start: 20170112
  39. REMICADE [Suspect]
     Active Substance: INFLIXIMAB
     Indication: BEHCET^S SYNDROME
     Route: 042
     Dates: start: 20170228, end: 20170228
  40. TRAMAL [Suspect]
     Active Substance: TRAMADOL
     Indication: BEHCET^S SYNDROME
     Route: 048
     Dates: start: 20170104, end: 20170117
  41. PREDONINE [Suspect]
     Active Substance: PREDNISOLONE
     Indication: BEHCET^S SYNDROME
     Route: 042
     Dates: start: 20170131, end: 20170223
  42. NEORAL [Suspect]
     Active Substance: CYCLOSPORINE
     Indication: BEHCET^S SYNDROME
     Route: 048
     Dates: start: 20170206, end: 20170212
  43. ATARAX [Concomitant]
     Active Substance: HYDROXYZINE HYDROCHLORIDE
     Indication: BEHCET^S SYNDROME
     Route: 042
     Dates: start: 20170127, end: 20170131
  44. ANAFRANIL [Concomitant]
     Active Substance: CLOMIPRAMINE HYDROCHLORIDE
     Indication: BEHCET^S SYNDROME
     Route: 042
     Dates: start: 20170127, end: 20170226
  45. OMEPRAZOLE. [Concomitant]
     Active Substance: OMEPRAZOLE
     Indication: PROPHYLAXIS
     Route: 042
     Dates: start: 20170325, end: 20170405
  46. RECOMODULIN [Concomitant]
     Active Substance: THROMBOMODULIN ALFA
     Indication: BEHCET^S SYNDROME
     Route: 042
     Dates: start: 20170121, end: 20170128
  47. NEORAL [Suspect]
     Active Substance: CYCLOSPORINE
     Indication: BEHCET^S SYNDROME
     Route: 048
     Dates: start: 20170213, end: 20170228
  48. OMEPRAL [Concomitant]
     Active Substance: OMEPRAZOLE
     Indication: PROPHYLAXIS
     Route: 042
     Dates: start: 20170118, end: 20170227

REACTIONS (6)
  - Pancreatitis acute [Recovered/Resolved]
  - Mucormycosis [Fatal]
  - Renal infarct [Fatal]
  - Drug ineffective [Unknown]
  - Pyrexia [Not Recovered/Not Resolved]
  - Behcet^s syndrome [Unknown]

NARRATIVE: CASE EVENT DATE: 20170121
